FAERS Safety Report 6834919-9 (Version None)
Quarter: 2010Q3

REPORT INFORMATION
  Report Type: 
  Country: None (occurrence: None)
  Receive Date: 20100712
  Receipt Date: 20080716
  Transmission Date: 20110219
  Serious: No
  Sender: FDA-Public Use
  Company Number: US-PFIZER INC-2007022978

PATIENT
  Sex: Female
  Weight: 61.23 kg

DRUGS (5)
  1. CHANTIX [Suspect]
     Indication: SMOKING CESSATION THERAPY
     Route: 048
     Dates: start: 20060101
  2. FOSAMAX [Concomitant]
  3. HYOSCYAMINE SULFATE [Concomitant]
  4. IMODIUM ADVANCED [Concomitant]
     Indication: IRRITABLE BOWEL SYNDROME
  5. NEXIUM [Concomitant]
     Indication: DYSPEPSIA

REACTIONS (4)
  - CARDIAC DISORDER [None]
  - DYSPEPSIA [None]
  - TOBACCO USER [None]
  - WEIGHT INCREASED [None]
